FAERS Safety Report 6622075-1 (Version None)
Quarter: 2010Q1

REPORT INFORMATION
  Report Type: 
  Country: None (occurrence: None)
  Receive Date: 20100223
  Receipt Date: 20091027
  Transmission Date: 20100710
  Serious: No
  Sender: FDA-Public Use
  Company Number: 8053766

PATIENT
  Sex: Female
  Weight: 78.2 kg

DRUGS (6)
  1. CERTOLIZUMAB PEGOL (UCB, INC) [Suspect]
     Indication: CROHN'S DISEASE
     Dosage: (SUBCUTANEOUS)
     Route: 058
     Dates: start: 20090619
  2. AZATHIOPRINE [Concomitant]
  3. HYDROCHLOROTHIAZIDE [Concomitant]
  4. CAPADEX [Concomitant]
  5. MULTI-VITAMIN [Concomitant]
  6. CALCIUM [Concomitant]

REACTIONS (2)
  - HYPOAESTHESIA [None]
  - PARAESTHESIA [None]
